FAERS Safety Report 8286437-1 (Version None)
Quarter: 2012Q2

REPORT INFORMATION
  Report Type: 
  Country: None (occurrence: None)
  Receive Date: 20120416
  Receipt Date: 20120404
  Transmission Date: 20120825
  Serious: Yes (Hospitalization)
  Sender: FDA-Public Use
  Company Number: IT-JNJFOC-20120402928

PATIENT
  Sex: Male
  Weight: 25.7 kg

DRUGS (2)
  1. ANTIBIOTICS [Concomitant]
     Indication: CROHN'S DISEASE
  2. REMICADE [Suspect]
     Indication: CROHN'S DISEASE
     Route: 042
     Dates: start: 20110222

REACTIONS (1)
  - CROHN'S DISEASE [None]
